FAERS Safety Report 6074476-0 (Version None)
Quarter: 2009Q1

REPORT INFORMATION
  Report Type: 
  Country: None (occurrence: None)
  Receive Date: 20090206
  Receipt Date: 20090122
  Transmission Date: 20090719
  Serious: Yes (Hospitalization, Other)
  Sender: FDA-Public Use
  Company Number: JPI-P-003550

PATIENT
  Age: 81 Year
  Sex: Male

DRUGS (11)
  1. XYREM [Suspect]
     Indication: INSOMNIA
     Dosage: 4 GM (2 GM, 2 IN 1 D) ,ORAL; 2 GM (2 GM, 1 IN 1 D) ,ORAL; 2 GRAIN (2 GRAIN, 1 IN 1 D), ORAL
     Route: 048
     Dates: start: 20080219, end: 20080417
  2. XYREM [Suspect]
     Indication: NARCOLEPSY
     Dosage: 4 GM (2 GM, 2 IN 1 D) ,ORAL; 2 GM (2 GM, 1 IN 1 D) ,ORAL; 2 GRAIN (2 GRAIN, 1 IN 1 D), ORAL
     Route: 048
     Dates: start: 20080219, end: 20080417
  3. XYREM [Suspect]
     Indication: INSOMNIA
     Dosage: 4 GM (2 GM, 2 IN 1 D) ,ORAL; 2 GM (2 GM, 1 IN 1 D) ,ORAL; 2 GRAIN (2 GRAIN, 1 IN 1 D), ORAL
     Route: 048
     Dates: start: 20080418, end: 20080418
  4. XYREM [Suspect]
     Indication: NARCOLEPSY
     Dosage: 4 GM (2 GM, 2 IN 1 D) ,ORAL; 2 GM (2 GM, 1 IN 1 D) ,ORAL; 2 GRAIN (2 GRAIN, 1 IN 1 D), ORAL
     Route: 048
     Dates: start: 20080418, end: 20080418
  5. XYREM [Suspect]
     Indication: INSOMNIA
     Dosage: 4 GM (2 GM, 2 IN 1 D) ,ORAL; 2 GM (2 GM, 1 IN 1 D) ,ORAL; 2 GRAIN (2 GRAIN, 1 IN 1 D), ORAL
     Route: 048
     Dates: start: 20080419, end: 20080430
  6. XYREM [Suspect]
     Indication: NARCOLEPSY
     Dosage: 4 GM (2 GM, 2 IN 1 D) ,ORAL; 2 GM (2 GM, 1 IN 1 D) ,ORAL; 2 GRAIN (2 GRAIN, 1 IN 1 D), ORAL
     Route: 048
     Dates: start: 20080419, end: 20080430
  7. XYREM [Suspect]
     Indication: INSOMNIA
     Dosage: 4 GM (2 GM, 2 IN 1 D) ,ORAL; 2 GM (2 GM, 1 IN 1 D) ,ORAL; 2 GRAIN (2 GRAIN, 1 IN 1 D), ORAL
     Route: 048
     Dates: start: 20080501, end: 20080501
  8. XYREM [Suspect]
     Indication: NARCOLEPSY
     Dosage: 4 GM (2 GM, 2 IN 1 D) ,ORAL; 2 GM (2 GM, 1 IN 1 D) ,ORAL; 2 GRAIN (2 GRAIN, 1 IN 1 D), ORAL
     Route: 048
     Dates: start: 20080501, end: 20080501
  9. XYREM [Suspect]
     Indication: INSOMNIA
     Dosage: 4 GM (2 GM, 2 IN 1 D) ,ORAL; 2 GM (2 GM, 1 IN 1 D) ,ORAL; 2 GRAIN (2 GRAIN, 1 IN 1 D), ORAL
     Route: 048
     Dates: start: 20080502
  10. XYREM [Suspect]
     Indication: NARCOLEPSY
     Dosage: 4 GM (2 GM, 2 IN 1 D) ,ORAL; 2 GM (2 GM, 1 IN 1 D) ,ORAL; 2 GRAIN (2 GRAIN, 1 IN 1 D), ORAL
     Route: 048
     Dates: start: 20080502
  11. PRAMIPEXOLE DIHYDROCHLORIDE [Concomitant]

REACTIONS (7)
  - FORMICATION [None]
  - HIP ARTHROPLASTY [None]
  - INFECTION [None]
  - MIDDLE INSOMNIA [None]
  - NAUSEA [None]
  - SOMNOLENCE [None]
  - TREMOR [None]
